FAERS Safety Report 9768931 (Version 1)
Quarter: 2013Q4

REPORT INFORMATION
  Report Type: Spontaneous
  Country: GB (occurrence: None)
  Receive Date: 20131125
  Receipt Date: 20131125
  Transmission Date: 20140711
  Serious: Yes (Other)
  Sender: FDA-Public Use
  Company Number: BTG00094

PATIENT
  Age: 91 Year
  Sex: Female

DRUGS (3)
  1. DIGIFAB [Suspect]
     Indication: TOXICITY TO VARIOUS AGENTS
     Dates: start: 20131010
  2. DIGIFAB [Suspect]
     Dates: start: 20131010
  3. DIGOXIN (DIGOXIN) [Suspect]
     Indication: PRODUCT USED FOR UNKNOWN INDICATION

REACTIONS (9)
  - Drug ineffective [None]
  - Hyperkalaemia [None]
  - Toxicity to various agents [None]
  - Mental disorder [None]
  - Visual impairment [None]
  - Gastrointestinal disorder [None]
  - Bradycardia [None]
  - Atrial fibrillation [None]
  - Cardioactive drug level above therapeutic [None]
